FAERS Safety Report 18644769 (Version 1)
Quarter: 2020Q4

REPORT INFORMATION
  Report Type: Spontaneous
  Country: US (occurrence: US)
  Receive Date: 20201221
  Receipt Date: 20201221
  Transmission Date: 20210114
  Serious: No
  Sender: FDA-Public Use
  Company Number: US-BAYER-2020-282592

PATIENT

DRUGS (2)
  1. MIRALAX [Suspect]
     Active Substance: POLYETHYLENE GLYCOL 3350
     Dosage: 17G, 10 CT, 1 QD
     Route: 048
  2. BENEFIBER FIBER SUPPLEMENT [Concomitant]

REACTIONS (1)
  - Drug ineffective [Unknown]
